FAERS Safety Report 6547266-X (Version None)
Quarter: 2010Q1

REPORT INFORMATION
  Report Type: 
  Country: None (occurrence: None)
  Receive Date: 20100122
  Receipt Date: 20090930
  Transmission Date: 20100710
  Serious: No
  Sender: FDA-Public Use
  Company Number: US-BAUSCH-2009BL004935

PATIENT
  Age: 59 Year
  Sex: Male

DRUGS (1)
  1. ZYLET [Suspect]
     Indication: FOREIGN BODY IN EYE
     Route: 047
     Dates: start: 20090929, end: 20090929

REACTIONS (4)
  - EYE IRRITATION [None]
  - EYE OEDEMA [None]
  - LACRIMATION INCREASED [None]
  - OCULAR HYPERAEMIA [None]
